FAERS Safety Report 24240032 (Version 2)
Quarter: 2024Q3

REPORT INFORMATION
  Report Type: Spontaneous
  Country: US (occurrence: US)
  Receive Date: 20240822
  Receipt Date: 20240826
  Transmission Date: 20241017
  Serious: No
  Sender: PFIZER
  Company Number: US-PFIZER INC-PV202400109774

PATIENT
  Age: 45 Year
  Sex: Female

DRUGS (1)
  1. NURTEC ODT [Suspect]
     Active Substance: RIMEGEPANT SULFATE
     Indication: Migraine prophylaxis
     Dosage: 75 MG, ALTERNATE DAY (DISSOLVE 1 TABLET ON TONGUE); MAX 1 TABLET PER 24 HOURS
     Route: 048

REACTIONS (3)
  - Drug ineffective [Unknown]
  - Anxiety [Unknown]
  - Palpitations [Unknown]
